FAERS Safety Report 14534943 (Version 1)
Quarter: 2018Q1

REPORT INFORMATION
  Report Type: Report from Study
  Country: CA (occurrence: CA)
  Receive Date: 20180215
  Receipt Date: 20180215
  Transmission Date: 20180509
  Serious: Yes (Hospitalization)
  Sender: FDA-Public Use
  Company Number: CA-JNJFOC-20180213306

PATIENT
  Age: 73 Year
  Sex: Male

DRUGS (1)
  1. SIMPONI [Suspect]
     Active Substance: GOLIMUMAB
     Indication: PSORIATIC ARTHROPATHY
     Route: 058

REACTIONS (7)
  - Haemorrhage urinary tract [Unknown]
  - Off label use [Unknown]
  - Urinary retention [Unknown]
  - Diarrhoea [Unknown]
  - Bacterial test [Unknown]
  - Product use issue [Unknown]
  - Syncope [Unknown]

NARRATIVE: CASE EVENT DATE: 201802
